FAERS Safety Report 7294924-8 (Version None)
Quarter: 2011Q1

REPORT INFORMATION
  Report Type: 
  Country: None (occurrence: None)
  Receive Date: 20110216
  Receipt Date: 20110207
  Transmission Date: 20110831
  Serious: Yes (Life-Threatening)
  Sender: FDA-Public Use
  Company Number: US-BAYER-2011-013544

PATIENT
  Sex: Female

DRUGS (1)
  1. YASMIN [Suspect]
     Indication: PRODUCT USED FOR UNKNOWN INDICATION
     Dosage: UNK
     Dates: start: 20061101

REACTIONS (6)
  - OEDEMA [None]
  - PAIN IN EXTREMITY [None]
  - ANXIETY [None]
  - PAIN [None]
  - FEAR [None]
  - DEEP VEIN THROMBOSIS [None]
